FAERS Safety Report 5154615-6 (Version None)
Quarter: 2006Q4

REPORT INFORMATION
  Report Type: 
  Country: None (occurrence: None)
  Receive Date: 20061113
  Receipt Date: 20061030
  Transmission Date: 20070319
  Serious: Yes (Death, Hospitalization)
  Sender: FDA-Public Use
  Company Number: MEDI-0005033

PATIENT
  Age: 4 Month
  Sex: Male
  Weight: 2.6 kg

DRUGS (7)
  1. SYNAGIS [Suspect]
     Indication: ANTIVIRAL PROPHYLAXIS
     Dosage: 40 MG, INTRAMUSCULAR
     Route: 030
     Dates: start: 20061010, end: 20061010
  2. FUROSEMIDE [Concomitant]
  3. SPIRONOLACTONE [Concomitant]
  4. TULOBUTEROL (TULOBUTEROL) [Concomitant]
  5. L-CARBOCISTEINE (CARBOCISTEINE LYSINE) [Concomitant]
  6. CARBAMAZEPINE [Concomitant]
  7. PHENOBARBITAL TAB [Concomitant]

REACTIONS (3)
  - ASPIRATION [None]
  - INJURY ASPHYXIATION [None]
  - VENTRICULAR FIBRILLATION [None]
